FAERS Safety Report 19823241 (Version 4)
Quarter: 2022Q4

REPORT INFORMATION
  Report Type: Spontaneous
  Country: US (occurrence: US)
  Receive Date: 20210913
  Receipt Date: 20221122
  Transmission Date: 20230112
  Serious: No
  Sender: FDA-Public Use
  Company Number: US-SA-SAC20210906001203

PATIENT
  Age: 48 Year
  Sex: Female

DRUGS (4)
  1. DUPIXENT [Suspect]
     Active Substance: DUPILUMAB
     Indication: Illness
     Dosage: 300 MG, QOW
     Route: 058
     Dates: end: 20211102
  2. DUPIXENT [Suspect]
     Active Substance: DUPILUMAB
     Indication: Psoriasis
  3. DUPIXENT [Suspect]
     Active Substance: DUPILUMAB
     Indication: Drug therapy
  4. OTEZLA [Concomitant]
     Active Substance: APREMILAST
     Indication: Psoriasis
     Dosage: UNK

REACTIONS (11)
  - Skin reaction [Unknown]
  - Dry skin [Not Recovered/Not Resolved]
  - Symptom recurrence [Not Recovered/Not Resolved]
  - Skin irritation [Not Recovered/Not Resolved]
  - Wound [Not Recovered/Not Resolved]
  - Rash [Unknown]
  - Product dose omission issue [Unknown]
  - Product dose omission issue [Unknown]
  - Pruritus [Not Recovered/Not Resolved]
  - Inappropriate schedule of product administration [Unknown]
  - Product use in unapproved indication [Unknown]

NARRATIVE: CASE EVENT DATE: 20211101
